FAERS Safety Report 5375042-2 (Version None)
Quarter: 2007Q2

REPORT INFORMATION
  Report Type: 
  Country: None (occurrence: None)
  Receive Date: 20070629
  Receipt Date: 20070623
  Transmission Date: 20071010
  Serious: Yes (Other)
  Sender: FDA-Public Use
  Company Number: US-ABBOTT-07P-163-0371669-00

PATIENT
  Age: 50 Year
  Sex: Male

DRUGS (2)
  1. TRICOR [Suspect]
     Indication: DRUG USE FOR UNKNOWN INDICATION
  2. STATIN THERAPY (STATIN THERAPY) [Interacting]
     Indication: DRUG USE FOR UNKNOWN INDICATION
     Dosage: LOW DOSE
     Dates: start: 20051201

REACTIONS (3)
  - DRUG INTERACTION [None]
  - RENAL FAILURE [None]
  - RHABDOMYOLYSIS [None]
